FAERS Safety Report 8385584-3 (Version None)
Quarter: 2012Q2

REPORT INFORMATION
  Report Type: 
  Country: None (occurrence: None)
  Receive Date: 20120525
  Receipt Date: 20120516
  Transmission Date: 20120825
  Serious: Yes (Other)
  Sender: FDA-Public Use
  Company Number: US-RB-040276-12

PATIENT
  Age: 46 Year
  Sex: Female

DRUGS (4)
  1. ADVIL [Concomitant]
     Indication: PRODUCT USED FOR UNKNOWN INDICATION
  2. MUCINEX D [Suspect]
     Indication: PRODUCT USED FOR UNKNOWN INDICATION
     Dosage: APPROXIMATELY 2.5 MONTHS AND USED FOR 3-4 DAYS
     Route: 048
  3. COUGH DROPS [Concomitant]
     Indication: PRODUCT USED FOR UNKNOWN INDICATION
  4. ASPIRIN [Concomitant]
     Indication: PRODUCT USED FOR UNKNOWN INDICATION

REACTIONS (4)
  - HALLUCINATION [None]
  - INSOMNIA [None]
  - HALLUCINATION, AUDITORY [None]
  - HEART RATE INCREASED [None]
